FAERS Safety Report 15534979 (Version 2)
Quarter: 2019Q1

REPORT INFORMATION
  Report Type: Spontaneous
  Country: US (occurrence: US)
  Receive Date: 20181022
  Receipt Date: 20190111
  Transmission Date: 20190417
  Serious: No
  Sender: FDA-Public Use
  Company Number: US-TEVA-2018-US-967353

PATIENT
  Age: 57 Year
  Sex: Male

DRUGS (1)
  1. AUSTEDO [Suspect]
     Active Substance: DEUTETRABENAZINE
     Dosage: 6MG
     Route: 048
     Dates: start: 20181010, end: 20181013

REACTIONS (5)
  - Feeling abnormal [Unknown]
  - Irritability [Unknown]
  - Fall [Unknown]
  - Dysarthria [Unknown]
  - Gait disturbance [Unknown]
